FAERS Safety Report 20654902 (Version 2)
Quarter: 2022Q2

REPORT INFORMATION
  Report Type: Report from Study
  Country: HU (occurrence: None)
  Receive Date: 20220330
  Receipt Date: 20220407
  Transmission Date: 20220721
  Serious: Yes (Hospitalization)
  Sender: FDA-Public Use
  Company Number: HU-Eisai Medical Research-EC-2022-111837

PATIENT
  Age: 78 Year
  Sex: Male
  Weight: 75 kg

DRUGS (19)
  1. LENVATINIB [Suspect]
     Active Substance: LENVATINIB
     Indication: Transitional cell carcinoma
     Route: 048
     Dates: start: 20200325, end: 20210826
  2. PEMBROLIZUMAB [Suspect]
     Active Substance: PEMBROLIZUMAB
     Indication: Transitional cell carcinoma
     Route: 041
     Dates: start: 20200325, end: 20220202
  3. PEMBROLIZUMAB [Suspect]
     Active Substance: PEMBROLIZUMAB
     Route: 041
     Dates: start: 20220223, end: 20220223
  4. ADEXOR [Concomitant]
     Dates: start: 20090630
  5. PANTOPRAZOLE SODIUM [Concomitant]
     Active Substance: PANTOPRAZOLE SODIUM
     Dates: start: 201003
  6. BISOPROLOL FUMARATE [Concomitant]
     Active Substance: BISOPROLOL FUMARATE
     Dates: start: 201003
  7. THROMBEXX [Concomitant]
     Dates: start: 201808
  8. XARELTO [Concomitant]
     Active Substance: RIVAROXABAN
     Dates: start: 20190125
  9. ROSUVASTATIN CALCIUM [Concomitant]
     Active Substance: ROSUVASTATIN CALCIUM
     Dates: start: 20190225
  10. RAMIPRIL [Concomitant]
     Active Substance: RAMIPRIL
     Dates: start: 201902
  11. SPIRONOLACTONE [Concomitant]
     Active Substance: SPIRONOLACTONE
     Dates: start: 201906
  12. FUROSEMIDE [Concomitant]
     Active Substance: FUROSEMIDE
     Dates: start: 20190701
  13. JARDIANCE [Concomitant]
     Active Substance: EMPAGLIFLOZIN
     Dates: start: 20191117
  14. MEGACE [Concomitant]
     Active Substance: MEGESTROL ACETATE
     Dates: start: 20200520
  15. HUMULIN R [Concomitant]
     Active Substance: INSULIN HUMAN
     Route: 058
     Dates: start: 20200529
  16. HUMULIN N [Concomitant]
     Active Substance: INSULIN HUMAN
     Route: 058
     Dates: start: 20200529
  17. NAPROXEN [Concomitant]
     Active Substance: NAPROXEN
     Dates: start: 20201228
  18. LEVOTHYROXINE SODIUM [Concomitant]
     Active Substance: LEVOTHYROXINE SODIUM
     Dates: start: 20210630
  19. PENTOSAN POLYSULFATE [Concomitant]
     Active Substance: PENTOSAN POLYSULFATE
     Dates: start: 20211117

REACTIONS (1)
  - Stenosis [Not Recovered/Not Resolved]

NARRATIVE: CASE EVENT DATE: 20220323
